FAERS Safety Report 6356817-X (Version None)
Quarter: 2009Q3

REPORT INFORMATION
  Report Type: 
  Country: None (occurrence: None)
  Receive Date: 20090915
  Receipt Date: 20090911
  Transmission Date: 20100115
  Serious: Yes (Life-Threatening, Other)
  Sender: FDA-Public Use
  Company Number: CA-ASTRAZENECA-2009SE09717

PATIENT
  Age: 56 Year
  Sex: Female

DRUGS (3)
  1. SYMBICORT [Suspect]
     Route: 055
     Dates: start: 20090818, end: 20090821
  2. SPIRIVA [Concomitant]
     Dates: start: 20080101
  3. SALBUTAMOL [Concomitant]
     Route: 055

REACTIONS (3)
  - DEVICE FAILURE [None]
  - DRUG INEFFECTIVE [None]
  - LOSS OF CONSCIOUSNESS [None]
